FAERS Safety Report 26043009 (Version 1)
Quarter: 2025Q4

REPORT INFORMATION
  Report Type: Spontaneous
  Country: US (occurrence: US)
  Receive Date: 20251113
  Receipt Date: 20251113
  Transmission Date: 20260117
  Serious: No
  Sender: ANI
  Company Number: US-ANIPHARMA-2025-US-046856

PATIENT
  Sex: Female

DRUGS (9)
  1. CORTICOTROPIN [Suspect]
     Active Substance: CORTICOTROPIN
     Indication: Rheumatoid arthritis
     Dosage: 80 UNITS SUBCUTANEOUSLY 3 TIMES A WEEK
     Route: 058
  2. NAPROXEN [Concomitant]
     Active Substance: NAPROXEN
  3. FOLIC ACID [Concomitant]
     Active Substance: FOLIC ACID
  4. METHOTREXATE SODIUM [Concomitant]
     Active Substance: METHOTREXATE SODIUM
  5. TRETINOIN [Concomitant]
     Active Substance: TRETINOIN
  6. SYNVISC [Concomitant]
     Active Substance: HYLAN G-F 20
  7. CYCLOBENZAPRINE HYDROCHLORIDE [Concomitant]
     Active Substance: CYCLOBENZAPRINE HYDROCHLORIDE
  8. PREDNISONE [Concomitant]
     Active Substance: PREDNISONE
  9. CLAVE NEEDLE FREE INJECTI [Concomitant]

REACTIONS (2)
  - Illness [Unknown]
  - Inappropriate schedule of product administration [Unknown]
